FAERS Safety Report 14239229 (Version 1)
Quarter: 2017Q4

REPORT INFORMATION
  Report Type: Spontaneous
  Country: PL (occurrence: PL)
  Receive Date: 20171130
  Receipt Date: 20171130
  Transmission Date: 20180321
  Serious: Yes (Other)
  Sender: FDA-Public Use
  Company Number: PL-INCYTE CORPORATION-2017IN010259

PATIENT

DRUGS (4)
  1. TARDYFERON [Suspect]
     Active Substance: FERROUS SULFATE
     Indication: PRODUCT USED FOR UNKNOWN INDICATION
     Dosage: UNK
     Route: 065
  2. HYDROXYUREA. [Concomitant]
     Active Substance: HYDROXYUREA
     Indication: PRODUCT USED FOR UNKNOWN INDICATION
     Dosage: 1X1 TAB
     Route: 065
  3. JAKAVI [Suspect]
     Active Substance: RUXOLITINIB
     Indication: PRODUCT USED FOR UNKNOWN INDICATION
     Dosage: 15 MG, UNK
     Route: 065
     Dates: start: 20170427
  4. XARELTO [Concomitant]
     Active Substance: RIVAROXABAN
     Indication: PRODUCT USED FOR UNKNOWN INDICATION
     Dosage: UNK
     Route: 065

REACTIONS (7)
  - Abdominal pain [Recovered/Resolved]
  - Monocyte count decreased [Unknown]
  - Mean cell haemoglobin concentration decreased [Unknown]
  - White blood cell disorder [Unknown]
  - Haemoglobin decreased [Unknown]
  - Platelet distribution width increased [Unknown]
  - Red cell distribution width increased [Unknown]

NARRATIVE: CASE EVENT DATE: 20170525
